FAERS Safety Report 7343446-4 (Version None)
Quarter: 2011Q1

REPORT INFORMATION
  Report Type: 
  Country: None (occurrence: None)
  Receive Date: 20110310
  Receipt Date: 20110223
  Transmission Date: 20110831
  Serious: Yes (Other)
  Sender: FDA-Public Use
  Company Number: US-BAYER-201038013NA

PATIENT
  Sex: Female

DRUGS (1)
  1. YAZ [Suspect]
     Indication: ACNE
     Route: 048
     Dates: start: 20080201

REACTIONS (6)
  - THROMBOSIS [None]
  - STRESS [None]
  - CEREBRAL THROMBOSIS [None]
  - ANXIETY [None]
  - DEPRESSION [None]
  - PAIN [None]
